FAERS Safety Report 4581504-8 (Version None)
Quarter: 2005Q1

REPORT INFORMATION
  Report Type: 
  Country: None (occurrence: None)
  Receive Date: 20050127
  Receipt Date: 20041109
  Transmission Date: 20050727
  Serious: No
  Sender: FDA-Public Use
  Company Number: USA040876317

PATIENT
  Age: 9 Year
  Sex: Female
  Weight: 41 kg

DRUGS (1)
  1. STRATTERA [Suspect]
     Indication: ATTENTION DEFICIT/HYPERACTIVITY DISORDER
     Dosage: 50 MG DAY
     Dates: start: 20040401

REACTIONS (4)
  - IMPULSE-CONTROL DISORDER [None]
  - IRRITABILITY [None]
  - NAUSEA [None]
  - STOMACH DISCOMFORT [None]
